FAERS Safety Report 21782471 (Version 1)
Quarter: 2022Q4

REPORT INFORMATION
  Report Type: Report from Study
  Country: DE (occurrence: DE)
  Receive Date: 20221227
  Receipt Date: 20221227
  Transmission Date: 20230113
  Serious: Yes (Other)
  Sender: FDA-Public Use
  Company Number: DE-TEVA-2022-DE-2816896

PATIENT
  Age: 61 Year
  Sex: Female

DRUGS (2)
  1. METFORMIN [Suspect]
     Active Substance: METFORMIN HYDROCHLORIDE
     Indication: Type 2 diabetes mellitus
     Dosage: 1000 MILLIGRAM (2000 MILLIGRAM DAILY)
     Route: 065
  2. COPAXONE [Suspect]
     Active Substance: GLATIRAMER ACETATE
     Indication: Multiple sclerosis
     Dosage: 40 MILLIGRAM, QW
     Route: 065
     Dates: start: 20191009

REACTIONS (7)
  - Type 2 diabetes mellitus [Unknown]
  - Weight decreased [Unknown]
  - Injection site mass [Recovering/Resolving]
  - Injection site pain [Recovering/Resolving]
  - Injection site erythema [Recovering/Resolving]
  - Injection site induration [Recovering/Resolving]
  - Injection related reaction [Unknown]

NARRATIVE: CASE EVENT DATE: 20220101
